FAERS Safety Report 22164227 (Version 2)
Quarter: 2023Q2

REPORT INFORMATION
  Report Type: Spontaneous
  Country: US (occurrence: US)
  Receive Date: 20230402
  Receipt Date: 20230505
  Transmission Date: 20230722
  Serious: Yes (Other)
  Sender: FDA-Public Use
  Company Number: US-JNJFOC-20230367678

PATIENT
  Age: 57 Year
  Sex: Female

DRUGS (7)
  1. TREMFYA [Suspect]
     Active Substance: GUSELKUMAB
     Indication: Psoriatic arthropathy
     Route: 065
     Dates: start: 202301
  2. TREMFYA [Suspect]
     Active Substance: GUSELKUMAB
     Indication: Psoriasis
  3. RIZATRIPTAN [Concomitant]
     Active Substance: RIZATRIPTAN
  4. ESTROGENS [Concomitant]
     Active Substance: ESTROGENS
  5. NALTREXONE [Concomitant]
     Active Substance: NALTREXONE
  6. PROGESTERONE [Concomitant]
     Active Substance: PROGESTERONE
  7. NURTEC ODT [Concomitant]
     Active Substance: RIMEGEPANT SULFATE

REACTIONS (2)
  - Psoriatic arthropathy [Not Recovered/Not Resolved]
  - Drug ineffective [Unknown]

NARRATIVE: CASE EVENT DATE: 20230308
